FAERS Safety Report 20216517 (Version 1)
Quarter: 2021Q4

REPORT INFORMATION
  Report Type: Spontaneous
  Country: US (occurrence: None)
  Receive Date: 20211221
  Receipt Date: 20211221
  Transmission Date: 20220303
  Serious: Yes (Other)
  Sender: FDA-Public Use
  Company Number: None

PATIENT
  Age: 83 Year
  Sex: Male
  Weight: 63 kg

DRUGS (4)
  1. REVLIMID [Suspect]
     Active Substance: LENALIDOMIDE
     Indication: B-cell lymphoma
     Dosage: OTHER QUANTITY : 1 CAPSULE(S);?FREQUENCY : DAILY;?
     Route: 048
  2. TAMSULOSIN [Suspect]
     Active Substance: TAMSULOSIN
  3. DUTASTERIDE [Suspect]
     Active Substance: DUTASTERIDE
  4. PRAVASTATIN [Suspect]
     Active Substance: PRAVASTATIN

REACTIONS (7)
  - Dyspepsia [None]
  - Weight decreased [None]
  - Decreased appetite [None]
  - Constipation [None]
  - Pyrexia [None]
  - Chills [None]
  - Night sweats [None]

NARRATIVE: CASE EVENT DATE: 20211125
